FAERS Safety Report 8065595-8 (Version None)
Quarter: 2012Q1

REPORT INFORMATION
  Report Type: 
  Country: None (occurrence: None)
  Receive Date: 20120124
  Receipt Date: 20120119
  Transmission Date: 20120608
  Serious: Yes (Hospitalization)
  Sender: FDA-Public Use
  Company Number: JP-SANOFI-AVENTIS-2012SA001486

PATIENT
  Age: 40 Year
  Sex: Male

DRUGS (3)
  1. MIGLITOL [Concomitant]
  2. AMARYL [Suspect]
     Dosage: DOSE: OVERDOSE
     Route: 065
     Dates: start: 20120101, end: 20120101
  3. AMARYL [Suspect]
     Route: 065

REACTIONS (3)
  - INTENTIONAL OVERDOSE [None]
  - SUICIDE ATTEMPT [None]
  - HYPOGLYCAEMIA [None]
